FAERS Safety Report 7880418-5 (Version None)
Quarter: 2011Q4

REPORT INFORMATION
  Report Type: 
  Country: None (occurrence: None)
  Receive Date: 20111101
  Receipt Date: 20111020
  Transmission Date: 20120403
  Serious: Yes (Hospitalization)
  Sender: FDA-Public Use
  Company Number: PHHY2011US12747

PATIENT
  Sex: Female
  Weight: 70 kg

DRUGS (2)
  1. EXJADE [Suspect]
     Indication: MYELODYSPLASTIC SYNDROME
     Dosage: 1000 MG, DAILY
     Route: 048
     Dates: start: 20070626
  2. EXJADE [Suspect]
     Indication: IRON OVERLOAD

REACTIONS (2)
  - UNEVALUABLE EVENT [None]
  - FALL [None]
